FAERS Safety Report 18419846 (Version 1)
Quarter: 2020Q4

REPORT INFORMATION
  Report Type: Spontaneous
  Country: HU (occurrence: HU)
  Receive Date: 20201023
  Receipt Date: 20201023
  Transmission Date: 20210114
  Serious: Yes (Other)
  Sender: FDA-Public Use
  Company Number: HU-ELI_LILLY_AND_COMPANY-HU202010006305

PATIENT
  Sex: Male

DRUGS (2)
  1. LARTRUVO [Suspect]
     Active Substance: OLARATUMAB
     Indication: MYXOFIBROSARCOMA
     Dosage: UNK
     Route: 065
     Dates: start: 2018, end: 20190425
  2. DOXORUBICIN [Concomitant]
     Active Substance: DOXORUBICIN
     Indication: MYXOFIBROSARCOMA
     Route: 065

REACTIONS (1)
  - Adenocarcinoma [Unknown]
